FAERS Safety Report 12348195 (Version 1)
Quarter: 2016Q2

REPORT INFORMATION
  Report Type: Report from Study
  Country: IN (occurrence: IN)
  Receive Date: 20160509
  Receipt Date: 20160509
  Transmission Date: 20160815
  Serious: Yes (Other)
  Sender: FDA-Public Use
  Company Number: PHHY2016IN062216

PATIENT
  Sex: Female

DRUGS (1)
  1. GLIVEC [Suspect]
     Active Substance: IMATINIB MESYLATE
     Indication: EXPOSURE VIA FATHER
     Dosage: FETAL DRUG EXPOSURE
     Route: 050

REACTIONS (2)
  - Abortion spontaneous [Unknown]
  - Exposure via father [Unknown]

NARRATIVE: CASE EVENT DATE: 201509
